FAERS Safety Report 17395455 (Version 1)
Quarter: 2020Q1

REPORT INFORMATION
  Report Type: Spontaneous
  Country: US (occurrence: US)
  Receive Date: 20200210
  Receipt Date: 20200210
  Transmission Date: 20200409
  Serious: No
  Sender: FDA-Public Use
  Company Number: US-GLAXOSMITHKLINE-US2020018251

PATIENT
  Age: 69 Year
  Sex: Female

DRUGS (1)
  1. BREO ELLIPTA [Suspect]
     Active Substance: FLUTICASONE FUROATE\VILANTEROL TRIFENATATE
     Indication: ASTHMA
     Dosage: 1 PUFF(S), QOD
     Route: 055
     Dates: start: 2019

REACTIONS (4)
  - Muscle spasms [Unknown]
  - Product dose omission [Unknown]
  - Middle insomnia [Unknown]
  - Product storage error [Unknown]

NARRATIVE: CASE EVENT DATE: 20200130
